FAERS Safety Report 13468600 (Version 7)
Quarter: 2017Q4

REPORT INFORMATION
  Report Type: Spontaneous
  Country: US (occurrence: US)
  Receive Date: 20170421
  Receipt Date: 20171211
  Transmission Date: 20180320
  Serious: No
  Sender: FDA-Public Use
  Company Number: US-PFIZER INC-2017146811

PATIENT
  Age: 61 Year
  Sex: Female

DRUGS (3)
  1. ADVIL [Suspect]
     Active Substance: IBUPROFEN
     Indication: HEADACHE
     Dosage: 400 MG, UNK  (2 DOSE FORMS)
     Dates: start: 20170328, end: 2017
  2. OXYBUTYNIN. [Concomitant]
     Active Substance: OXYBUTYNIN CHLORIDE
     Indication: BLADDER DISORDER
     Dosage: 1 DF, DAILY
  3. MYRBETRIQ [Concomitant]
     Active Substance: MIRABEGRON
     Dosage: UNK, DAILY

REACTIONS (7)
  - Product odour abnormal [Recovered/Resolved]
  - Abdominal discomfort [Recovered/Resolved]
  - Product quality issue [Recovered/Resolved]
  - Nausea [Recovered/Resolved]
  - Poor quality drug administered [Recovered/Resolved]
  - Diarrhoea [Recovered/Resolved]
  - Insomnia [Recovered/Resolved]

NARRATIVE: CASE EVENT DATE: 20170328
